FAERS Safety Report 24318416 (Version 2)
Quarter: 2024Q3

REPORT INFORMATION
  Report Type: Report from Study
  Country: BR (occurrence: BR)
  Receive Date: 20240913
  Receipt Date: 20240926
  Transmission Date: 20241017
  Serious: Yes (Other)
  Sender: BAYER
  Company Number: BR-BAYER-2024A127792

PATIENT
  Age: 63 Year
  Sex: Female

DRUGS (12)
  1. STIVARGA [Suspect]
     Active Substance: REGORAFENIB MONOHYDRATE
     Indication: Malignant peritoneal neoplasm
     Dosage: 40 MG, QD
     Dates: start: 20240705, end: 20240711
  2. STIVARGA [Suspect]
     Active Substance: REGORAFENIB MONOHYDRATE
     Indication: Metastases to liver
     Dosage: 80 MG, QD
     Dates: start: 20240712, end: 20240718
  3. STIVARGA [Suspect]
     Active Substance: REGORAFENIB MONOHYDRATE
     Indication: Malignant peritoneal neoplasm
     Dosage: 120 MG, QD
     Dates: start: 20240719, end: 20240725
  4. STIVARGA [Suspect]
     Active Substance: REGORAFENIB MONOHYDRATE
     Indication: Malignant peritoneal neoplasm
     Dosage: 160 MG, QD
     Dates: start: 20240802
  5. ALPHA LIPOIC [Concomitant]
     Indication: Neoplasm malignant
     Dosage: 800 MG, QD (HAVE TO TAKE 3 CAPSULES PER DAY, BUT ONLY TAKES 2)
  6. BERBERINE [Concomitant]
     Active Substance: BERBERINE
     Indication: Neoplasm malignant
     Dosage: 200 MG, QD (WITH BREAKFAST AND DINNER)
  7. MEBENDAZOLE [Concomitant]
     Active Substance: MEBENDAZOLE
     Indication: Neoplasm malignant
     Dosage: TAKES 2 CAPSULES AT ONCE, TAKING 2 CAPSULES AT BREAKFAST AND 2 AT DINNER.
  8. MAGNESIUM [Concomitant]
     Active Substance: MAGNESIUM
     Indication: Neoplasm malignant
     Dosage: 200 MG, QD
  9. RELORA [Concomitant]
     Indication: Stress
     Dosage: 600 MG, QD
  10. MELATONIN [Concomitant]
     Active Substance: MELATONIN
     Indication: Insomnia
     Dosage: UNK
  11. SIMETHICONE (DIMETHICONE) [Concomitant]
     Active Substance: DIMETHICONE
     Indication: Flatulence
     Dosage: UNK
  12. FUROSEMIDE [Concomitant]
     Active Substance: FUROSEMIDE
     Indication: Cystitis
     Dosage: 1 DF, QD
     Dates: start: 202409

REACTIONS (14)
  - Palmar-plantar erythrodysaesthesia syndrome [Recovering/Resolving]
  - Arrhythmia [Recovering/Resolving]
  - Dysaesthesia [Recovering/Resolving]
  - Ascites [Not Recovered/Not Resolved]
  - Shock [None]
  - Abdominal mass [Not Recovered/Not Resolved]
  - Abdominal pain [Not Recovered/Not Resolved]
  - Flatulence [Not Recovered/Not Resolved]
  - Constipation [Not Recovered/Not Resolved]
  - Dyschezia [Not Recovered/Not Resolved]
  - Anxiety [None]
  - Off label use [None]
  - Malaise [Not Recovered/Not Resolved]
  - Abdominal distension [Not Recovered/Not Resolved]

NARRATIVE: CASE EVENT DATE: 20240801
